FAERS Safety Report 5452703-8 (Version None)
Quarter: 2007Q3

REPORT INFORMATION
  Report Type: 
  Country: None (occurrence: None)
  Receive Date: 20070914
  Receipt Date: 20070903
  Transmission Date: 20080115
  Serious: Yes (Hospitalization, Disabling)
  Sender: FDA-Public Use
  Company Number: FR-GILEAD-2007-0012377

PATIENT
  Sex: Male
  Weight: 100 kg

DRUGS (14)
  1. HEPSERA [Suspect]
     Indication: HEPATITIS B VIRUS
     Dates: start: 20030101, end: 20030101
  2. VIREAD [Suspect]
     Indication: HEPATITIS B VIRUS
     Route: 048
     Dates: start: 20040801, end: 20040901
  3. VIREAD [Suspect]
     Route: 048
     Dates: start: 20050314, end: 20050301
  4. VIREAD [Suspect]
     Dates: start: 20070401
  5. VIREAD [Suspect]
     Dates: start: 20070501
  6. EPIVIR [Concomitant]
     Indication: HIV INFECTION
     Route: 048
     Dates: start: 20020101
  7. NORVIR [Concomitant]
     Indication: HIV INFECTION
     Route: 048
     Dates: start: 20020101
  8. TELZIR [Concomitant]
     Indication: HIV INFECTION
     Route: 048
     Dates: start: 20020101
  9. ZIAGEN [Concomitant]
     Indication: HIV INFECTION
     Route: 048
     Dates: start: 20020101
  10. DARUNAVIR [Concomitant]
  11. ETRAVIRINE [Concomitant]
  12. ENFUVIRTIDE [Concomitant]
  13. ENTECAVIR [Concomitant]
     Dates: start: 20050301
  14. PROBENECID [Concomitant]
     Dates: start: 20070401

REACTIONS (4)
  - DRUG INEFFECTIVE [None]
  - FANCONI SYNDROME ACQUIRED [None]
  - HEPATITIS VIRAL [None]
  - RENAL FAILURE ACUTE [None]
